FAERS Safety Report 6382810-7 (Version None)
Quarter: 2009Q3

REPORT INFORMATION
  Report Type: 
  Country: None (occurrence: None)
  Receive Date: 20090930
  Receipt Date: 20090925
  Transmission Date: 20100115
  Serious: Yes (Other)
  Sender: FDA-Public Use
  Company Number: IN-PURDUE-USA-2009-0040228

PATIENT
  Age: 10 Year
  Sex: Female
  Weight: 24 kg

DRUGS (7)
  1. TRAMADOL HCL [Suspect]
     Indication: PREMEDICATION
     Dosage: 50 MG, SINGLE
     Route: 042
  2. ISONIAZID [Interacting]
     Indication: TUBERCULOSIS
     Dosage: 150 MG, UNK
  3. RIFAMPICIN [Concomitant]
     Indication: TUBERCULOSIS
     Dosage: 300 MG, UNK
  4. ETHAMBUTOL HYDROCHLORIDE [Concomitant]
     Indication: TUBERCULOSIS
     Dosage: 400 MG, UNK
  5. PYRAZINAMIDE [Concomitant]
     Indication: TUBERCULOSIS
     Dosage: 600 MG, UNK
  6. ONDANSETRON [Concomitant]
     Indication: PREMEDICATION
     Dosage: 2 MG, SINGLE
     Route: 042
  7. MIDAZOLAM HCL [Concomitant]
     Indication: PREMEDICATION
     Dosage: 0.5 MG, SINGLE
     Route: 042

REACTIONS (2)
  - CONVULSION [None]
  - DRUG INTERACTION [None]
